FAERS Safety Report 8077054-7 (Version None)
Quarter: 2012Q1

REPORT INFORMATION
  Report Type: 
  Country: None (occurrence: None)
  Receive Date: 20120127
  Receipt Date: 20120119
  Transmission Date: 20120608
  Serious: Yes (Death)
  Sender: FDA-Public Use
  Company Number: PHHY2012EC006258

PATIENT
  Sex: Female

DRUGS (6)
  1. CLONAZEPAM [Concomitant]
  2. ADORLAR [Concomitant]
  3. CALCIUM [Concomitant]
  4. ZOLEDRONOC ACID [Suspect]
     Dosage: 5 MG/100 ML
     Route: 042
     Dates: start: 20111125
  5. MOVIFELX [Concomitant]
  6. ZOLEDRONOC ACID [Suspect]
     Indication: OSTEOPOROSIS
     Dosage: 5 MG/100 ML
     Route: 042
     Dates: start: 20101125

REACTIONS (5)
  - DYSPNOEA [None]
  - COUGH [None]
  - OEDEMA PERIPHERAL [None]
  - MYOCARDIAL INFARCTION [None]
  - ASTHENIA [None]
